FAERS Safety Report 18916361 (Version 1)
Quarter: 2021Q1

REPORT INFORMATION
  Report Type: Spontaneous
  Country: JP (occurrence: JP)
  Receive Date: 20210219
  Receipt Date: 20210219
  Transmission Date: 20210420
  Serious: Yes (Other)
  Sender: FDA-Public Use
  Company Number: JP-PFIZER INC-2021149050

PATIENT

DRUGS (1)
  1. CHAMPIX 0.5MG [Suspect]
     Active Substance: VARENICLINE TARTRATE
     Dosage: 1 DF, DAILY (IN THE MORNING, FOR 14 DAYS)

REACTIONS (1)
  - Dementia [Unknown]
